FAERS Safety Report 16077752 (Version 1)
Quarter: 2019Q1

REPORT INFORMATION
  Report Type: Spontaneous
  Country: ES (occurrence: ES)
  Receive Date: 20190315
  Receipt Date: 20190315
  Transmission Date: 20190418
  Serious: Yes (Life-Threatening, Hospitalization, Disabling, Other)
  Sender: FDA-Public Use
  Company Number: ES-PFIZER INC-2019110602

PATIENT
  Age: 73 Year
  Sex: Female

DRUGS (10)
  1. CARDYL [Suspect]
     Active Substance: ATORVASTATIN CALCIUM
     Indication: ACUTE MYOCARDIAL INFARCTION
     Dosage: 80 MG, 1X/DAY (AT SUPPER)
     Route: 048
     Dates: start: 201811, end: 201901
  2. BRILIQUE [Interacting]
     Active Substance: TICAGRELOR
     Indication: ACUTE MYOCARDIAL INFARCTION
     Dosage: 90 MG, 2X/DAY (EVERY 12 HOURS, ONE AT BREAKFAST AND OTHER AT SUPPER)
     Route: 048
     Dates: start: 201811, end: 201901
  3. EMCONCOR COR [Concomitant]
     Active Substance: BISOPROLOL
     Indication: ACUTE MYOCARDIAL INFARCTION
     Dosage: 2.5 MG, 2X/DAY (1 TABLET AT BREAKFAST ANOTHER AT SUPPER)
     Route: 048
     Dates: start: 201811
  4. CAFINITRINA [CAFFEINE CITRATE;GLYCERYL TRINITRATE] [Concomitant]
     Active Substance: CAFFEINE CITRATE\NITROGLYCERIN
     Indication: ACUTE MYOCARDIAL INFARCTION
     Dosage: ONLY IF CHEST PAIN. POSSIBLE TO TAKE UP TO 3 TABLETS SEPARATED WITH 15 MINUTES.
     Route: 060
     Dates: start: 201811
  5. DEMILOS [Concomitant]
     Active Substance: CALCIUM CARBONATE\CHOLECALCIFEROL
     Indication: OSTEOPOROSIS
     Dosage: 1 DF (600 MG/1000 UI), EVERY 24 HOURS
     Route: 048
  6. DOLOCATIL [Concomitant]
     Active Substance: ACETAMINOPHEN
     Indication: CATARRH
     Dosage: UNK
     Route: 048
     Dates: start: 20181205
  7. ORFIDAL [Concomitant]
     Active Substance: LORAZEPAM
     Dosage: 2 MG, 1X/DAY (2 EVERY 24H)
     Route: 048
  8. ADIRO [Concomitant]
     Active Substance: ASPIRIN
     Indication: ACUTE MYOCARDIAL INFARCTION
     Dosage: 100 MG, 1X/DAY (24H, 1 TABLET WITH A MEAL)
     Route: 048
     Dates: start: 201811
  9. OMEPRAZOLE. [Concomitant]
     Active Substance: OMEPRAZOLE
     Dosage: 20 MG, 1X/DAY (1-0-0. 1 EVERY 24H)
     Route: 048
  10. RAMIPRIL. [Concomitant]
     Active Substance: RAMIPRIL
     Indication: ACUTE MYOCARDIAL INFARCTION
     Dosage: 5 MG, 1X/DAY (24H, 1 TABLET AT BREAKFAST)
     Route: 048
     Dates: start: 201811

REACTIONS (4)
  - Rhabdomyolysis [Recovering/Resolving]
  - Acute kidney injury [Recovering/Resolving]
  - Myopathy [Recovering/Resolving]
  - Drug interaction [Unknown]

NARRATIVE: CASE EVENT DATE: 201811
